FAERS Safety Report 9785664 (Version 1)
Quarter: 2013Q4

REPORT INFORMATION
  Report Type: Spontaneous
  Country: US (occurrence: US)
  Receive Date: 20131227
  Receipt Date: 20131227
  Transmission Date: 20140711
  Serious: Yes (Other)
  Sender: FDA-Public Use
  Company Number: US-BAYER-2013-156002

PATIENT
  Age: 73 Year
  Sex: Female

DRUGS (6)
  1. ACETYLSALICYLIC ACID({=100 MG) [Suspect]
     Dosage: 81 MG/D
  2. METOPROLOL [Concomitant]
  3. FUROSEMIDE [Concomitant]
  4. LEVOTHYROXINE [Concomitant]
  5. HYDROCODONE [Concomitant]
     Dosage: 10 MG, TID
  6. MORPHINE SULFATE [Concomitant]
     Dosage: 15 MG, EVERY 12 HOURS

REACTIONS (3)
  - Spinal epidural haematoma [None]
  - Lumbar spinal stenosis [None]
  - Muscular weakness [None]
